FAERS Safety Report 18467924 (Version 1)
Quarter: 2020Q4

REPORT INFORMATION
  Report Type: Spontaneous
  Country: US (occurrence: US)
  Receive Date: 20201105
  Receipt Date: 20201105
  Transmission Date: 20210114
  Serious: No
  Sender: FDA-Public Use
  Company Number: US-GLAXOSMITHKLINE-US2020214231

PATIENT
  Sex: Male

DRUGS (1)
  1. ALLI [Suspect]
     Active Substance: ORLISTAT
     Indication: MEDICAL DIET
     Dosage: UNK

REACTIONS (4)
  - Steatorrhoea [Unknown]
  - Diarrhoea [Unknown]
  - Faeces discoloured [Unknown]
  - Extra dose administered [Unknown]
